FAERS Safety Report 4279429-0 (Version None)
Quarter: 2004Q1

REPORT INFORMATION
  Report Type: 
  Country: None (occurrence: None)
  Receive Date: 20040127
  Receipt Date: 20031209
  Transmission Date: 20041129
  Serious: Yes (Hospitalization)
  Sender: FDA-Public Use
  Company Number: JP-BRISTOL-MYERS SQUIBB COMPANY-12457099

PATIENT
  Age: 64 Year
  Sex: Female

DRUGS (2)
  1. MEVALOTIN TABS 10 MG [Suspect]
     Indication: HYPERLIPIDAEMIA
     Route: 048
     Dates: start: 20030705, end: 20030818
  2. POLITOSE [Concomitant]

REACTIONS (3)
  - AUTOIMMUNE HEPATITIS [None]
  - CHOLESTASIS [None]
  - LYMPHOCYTE STIMULATION TEST POSITIVE [None]
